FAERS Safety Report 6965657-X (Version None)
Quarter: 2010Q3

REPORT INFORMATION
  Report Type: 
  Country: None (occurrence: None)
  Receive Date: 20100903
  Receipt Date: 20100803
  Transmission Date: 20110219
  Serious: No
  Sender: FDA-Public Use
  Company Number: US-BAYER-201019281BCC

PATIENT
  Age: 75 Year
  Sex: Female
  Weight: 88 kg

DRUGS (1)
  1. ALEVE [Suspect]
     Indication: ARTHRITIS
     Route: 048

REACTIONS (1)
  - ARTHRITIS [None]
